FAERS Safety Report 24205373 (Version 1)
Quarter: 2024Q3

REPORT INFORMATION
  Report Type: Spontaneous
  Country: US (occurrence: US)
  Receive Date: 20240813
  Receipt Date: 20240813
  Transmission Date: 20241017
  Serious: No
  Sender: SANDOZ
  Company Number: US-SANDOZ-SDZ2024US072178

PATIENT
  Sex: Female

DRUGS (1)
  1. GLATOPA [Suspect]
     Active Substance: GLATIRAMER ACETATE
     Indication: Product used for unknown indication
     Dosage: 3X WEEKS
     Route: 065

REACTIONS (4)
  - Arthralgia [Unknown]
  - Product dose omission issue [Unknown]
  - Product packaging issue [Unknown]
  - Product storage error [Unknown]
